FAERS Safety Report 7611887-3 (Version None)
Quarter: 2011Q3

REPORT INFORMATION
  Report Type: 
  Country: None (occurrence: None)
  Receive Date: 20110715
  Receipt Date: 20110706
  Transmission Date: 20111222
  Serious: Yes (Other)
  Sender: FDA-Public Use
  Company Number: US-BRISTOL-MYERS SQUIBB COMPANY-15878739

PATIENT
  Age: 6 Decade
  Sex: Female

DRUGS (10)
  1. LITHIUM [Concomitant]
     Dosage: LITHIUM ER
  2. GLIPIZIDE [Suspect]
     Dosage: TAKING A CUT TAB,5MG
     Dates: start: 20110518
  3. CLONAZEPAM [Concomitant]
  4. FISH OIL [Concomitant]
  5. VITAMIN D [Concomitant]
  6. METAMUCIL-2 [Concomitant]
  7. NAPROXEN (ALEVE) [Concomitant]
  8. METFORMIN HCL [Suspect]
  9. DIOVAN [Concomitant]
     Indication: BLOOD PRESSURE
     Dosage: TAB
  10. FLAXSEED [Concomitant]

REACTIONS (1)
  - ORAL FUNGAL INFECTION [None]
